FAERS Safety Report 5173178-2 (Version None)
Quarter: 2006Q4

REPORT INFORMATION
  Report Type: 
  Country: None (occurrence: None)
  Receive Date: 20061205
  Receipt Date: 20061123
  Transmission Date: 20070319
  Serious: Yes (Hospitalization)
  Sender: FDA-Public Use
  Company Number: THYR-10340

PATIENT
  Sex: Female

DRUGS (1)
  1. THYROGEN [Suspect]
     Indication: DIAGNOSTIC PROCEDURE
     Dosage: 0.9 MG ONCE IM
     Route: 030
     Dates: start: 20060301, end: 20060301

REACTIONS (8)
  - EYELID OEDEMA [None]
  - FACE OEDEMA [None]
  - HEADACHE [None]
  - INJURY ASPHYXIATION [None]
  - JOINT SWELLING [None]
  - LIP SWELLING [None]
  - NAUSEA [None]
  - OEDEMA PERIPHERAL [None]
